FAERS Safety Report 13045394 (Version 1)
Quarter: 2016Q4

REPORT INFORMATION
  Report Type: Spontaneous
  Country: US (occurrence: US)
  Receive Date: 20161219
  Receipt Date: 20161219
  Transmission Date: 20170207
  Serious: Yes (Hospitalization)
  Sender: FDA-Public Use
  Company Number: None

PATIENT
  Age: 60 Year
  Sex: Male
  Weight: 84.5 kg

DRUGS (2)
  1. NAPROXEN. [Suspect]
     Active Substance: NAPROXEN
     Dates: start: 20160216
  2. ASPIRIN. [Suspect]
     Active Substance: ASPIRIN

REACTIONS (3)
  - Duodenal ulcer [None]
  - Gastric ulcer [None]
  - Haematochezia [None]

NARRATIVE: CASE EVENT DATE: 20161109
